FAERS Safety Report 25874401 (Version 1)
Quarter: 2025Q4

REPORT INFORMATION
  Report Type: Spontaneous
  Country: US (occurrence: US)
  Receive Date: 20251002
  Receipt Date: 20251002
  Transmission Date: 20260117
  Serious: No
  Sender: MYLAN
  Company Number: US-MYLANLABS-2025M1080842

PATIENT
  Age: 46 Year
  Sex: Female

DRUGS (5)
  1. XANAX [Suspect]
     Active Substance: ALPRAZOLAM
     Indication: Bipolar disorder
     Dosage: 1 MILLIGRAM
  2. CAPLYTA [Suspect]
     Active Substance: LUMATEPERONE
     Indication: Bipolar II disorder
     Dosage: 21 MILLIGRAM, QD (1X/DAY)
     Dates: start: 20250717, end: 2025
  3. CAPLYTA [Suspect]
     Active Substance: LUMATEPERONE
     Dosage: 42 MILLIGRAM, BID (2X/DAY)
     Dates: start: 2025, end: 2025
  4. CAPLYTA [Suspect]
     Active Substance: LUMATEPERONE
     Dosage: 21 MILLIGRAM, QD (1X/DAY AT 3 PM)
     Dates: start: 2025
  5. CAPLYTA [Suspect]
     Active Substance: LUMATEPERONE
     Dosage: 42 MILLIGRAM, QD(1X/DAY AT NIGHT)
     Dates: start: 2025

REACTIONS (1)
  - Withdrawal syndrome [Recovering/Resolving]

NARRATIVE: CASE EVENT DATE: 20250101
